FAERS Safety Report 6622576-6 (Version None)
Quarter: 2010Q1

REPORT INFORMATION
  Report Type: 
  Country: None (occurrence: None)
  Receive Date: 20100310
  Receipt Date: 20100108
  Transmission Date: 20100710
  Serious: Yes (Other)
  Sender: FDA-Public Use
  Company Number: US-BIOGENIDEC-2010BI001218

PATIENT
  Sex: Female

DRUGS (1)
  1. AVONEX [Suspect]
     Indication: DRUG USE FOR UNKNOWN INDICATION
     Route: 030
     Dates: end: 20091201

REACTIONS (4)
  - CONVULSION [None]
  - GAIT DISTURBANCE [None]
  - INJURY [None]
  - MYALGIA [None]
